FAERS Safety Report 10354093 (Version 2)
Quarter: 2014Q3

REPORT INFORMATION
  Report Type: Spontaneous
  Country: US (occurrence: US)
  Receive Date: 20140731
  Receipt Date: 20140821
  Transmission Date: 20150326
  Serious: No
  Sender: FDA-Public Use
  Company Number: US-PFIZER INC-2014213051

PATIENT
  Age: 28 Year
  Sex: Female
  Weight: 72.6 kg

DRUGS (3)
  1. XANAX [Concomitant]
     Active Substance: ALPRAZOLAM
     Dosage: 1 MG, DAILY
  2. EFFEXOR XR [Suspect]
     Active Substance: VENLAFAXINE HYDROCHLORIDE
     Indication: ANXIETY
  3. EFFEXOR XR [Suspect]
     Active Substance: VENLAFAXINE HYDROCHLORIDE
     Indication: DEPRESSION
     Dosage: 150 MG, DAILY
     Dates: start: 2013, end: 201407

REACTIONS (7)
  - Headache [Unknown]
  - Dysstasia [Unknown]
  - Dizziness [Unknown]
  - Feeling abnormal [Unknown]
  - Activities of daily living impaired [Unknown]
  - Diarrhoea [Unknown]
  - Drug withdrawal syndrome [Unknown]
